FAERS Safety Report 5229105-2 (Version None)
Quarter: 2007Q1

REPORT INFORMATION
  Report Type: 
  Country: None (occurrence: None)
  Receive Date: 20061201
  Receipt Date: 20060816
  Transmission Date: 20070707
  Serious: No
  Sender: FDA-Public Use
  Company Number: US200608003593

PATIENT
  Sex: Female

DRUGS (4)
  1. CYMBALTA [Suspect]
     Indication: POLYMYOSITIS
     Dosage: 30 MG, EACH MORNING, ORAL
     Route: 048
     Dates: start: 20060816
  2. LIPITOR [Concomitant]
  3. BETA BLOCKING AGENTS [Concomitant]
  4. SOMA [Concomitant]

REACTIONS (2)
  - NAUSEA [None]
  - PARAESTHESIA [None]
